FAERS Safety Report 6170219-0 (Version None)
Quarter: 2009Q2

REPORT INFORMATION
  Report Type: 
  Country: None (occurrence: None)
  Receive Date: 20090428
  Receipt Date: 20090420
  Transmission Date: 20091009
  Serious: Yes (Hospitalization)
  Sender: FDA-Public Use
  Company Number: PHHY2009ZA02305

PATIENT
  Sex: Male

DRUGS (6)
  1. DIOVAN HCT [Suspect]
  2. TAREG [Concomitant]
     Dosage: 160 MG
  3. LEVEMIR [Concomitant]
  4. ARROW-METFORMIN [Concomitant]
  5. NOVO-RAPID [Concomitant]
  6. ASPIRIN [Concomitant]

REACTIONS (2)
  - BRONCHITIS [None]
  - PNEUMONIA [None]
